FAERS Safety Report 17953162 (Version 6)
Quarter: 2022Q2

REPORT INFORMATION
  Report Type: Spontaneous
  Country: SK (occurrence: SK)
  Receive Date: 20200627
  Receipt Date: 20220608
  Transmission Date: 20220720
  Serious: Yes (Hospitalization, Other)
  Sender: FDA-Public Use
  Company Number: None

PATIENT
  Age: 31 Year
  Sex: Male

DRUGS (5)
  1. FUROSEMIDE [Suspect]
     Active Substance: FUROSEMIDE
     Indication: Sinus tachycardia
     Dosage: UNK
     Route: 065
     Dates: start: 201904
  2. BISOPROLOL [Suspect]
     Active Substance: BISOPROLOL
     Indication: Sinus tachycardia
     Dosage: UNK
     Route: 065
     Dates: start: 201904, end: 201904
  3. EPLERENONE [Suspect]
     Active Substance: EPLERENONE
     Indication: Sinus tachycardia
     Dosage: UNK
     Route: 065
     Dates: start: 201904
  4. PERINDOPRIL [Suspect]
     Active Substance: PERINDOPRIL
     Indication: Sinus tachycardia
     Dosage: UNK
     Route: 065
     Dates: start: 201904, end: 201904
  5. IVABRADINE [Concomitant]
     Active Substance: IVABRADINE
     Indication: Product used for unknown indication
     Dosage: UNK
     Route: 065

REACTIONS (12)
  - Hypotension [Recovered/Resolved]
  - Renal impairment [Recovered/Resolved]
  - Circulatory collapse [Recovered/Resolved]
  - Renal function test abnormal [Recovering/Resolving]
  - Congestive cardiomyopathy [Recovering/Resolving]
  - Ejection fraction decreased [Unknown]
  - Off label use [Unknown]
  - Product use issue [Unknown]
  - Product use in unapproved indication [Unknown]
  - Dizziness [Recovered/Resolved]
  - Syncope [Recovered/Resolved]
  - Vertigo [Recovered/Resolved]

NARRATIVE: CASE EVENT DATE: 20190101
